FAERS Safety Report 10142831 (Version 1)
Quarter: 2014Q2

REPORT INFORMATION
  Report Type: Spontaneous
  Country: KR (occurrence: None)
  Receive Date: 20140428
  Receipt Date: 20140428
  Transmission Date: 20141212
  Serious: Yes (Other)
  Sender: FDA-Public Use
  Company Number: IMP_07617_2014

PATIENT
  Age: 53 Year
  Sex: Female

DRUGS (2)
  1. CHLOROQUINE [Suspect]
     Indication: SYSTEMIC LUPUS ERYTHEMATOSUS
  2. CHLOROQUINE [Suspect]

REACTIONS (4)
  - Retinopathy [None]
  - Visual field defect [None]
  - Retinal depigmentation [None]
  - Maculopathy [None]
